FAERS Safety Report 9419043 (Version 1)
Quarter: 2013Q3

REPORT INFORMATION
  Report Type: Report from Study
  Country: AR (occurrence: AR)
  Receive Date: 20130725
  Receipt Date: 20130725
  Transmission Date: 20140515
  Serious: Yes (Hospitalization)
  Sender: FDA-Public Use
  Company Number: PHHY2013AR078378

PATIENT
  Sex: Male

DRUGS (1)
  1. EXFORGE [Suspect]
     Indication: BLOOD PRESSURE INCREASED
     Dosage: 1 DF (VALS 160 MG, AMLO 5 MG), DAILY
     Route: 048
     Dates: start: 2012, end: 201305

REACTIONS (1)
  - Feeling abnormal [Recovering/Resolving]
